FAERS Safety Report 8001148-5 (Version None)
Quarter: 2011Q4

REPORT INFORMATION
  Report Type: 
  Country: None (occurrence: None)
  Receive Date: 20111222
  Receipt Date: 20111213
  Transmission Date: 20120403
  Serious: Yes (Life-Threatening, Hospitalization)
  Sender: FDA-Public Use
  Company Number: US-ELI_LILLY_AND_COMPANY-US201112002432

PATIENT
  Sex: Female

DRUGS (4)
  1. BIVALIRUDIN [Concomitant]
     Dosage: UNK
     Dates: start: 20111205
  2. ASPIRIN [Concomitant]
     Dosage: UNK
     Dates: start: 20111205
  3. PRASUGREL HYDROCHLORIDE [Suspect]
     Dosage: UNK
     Dates: start: 20111205
  4. REOPRO [Concomitant]
     Dosage: UNK
     Dates: start: 20111205

REACTIONS (3)
  - POST PROCEDURAL HAEMATOMA [None]
  - ANAEMIA [None]
  - NEUROGENIC SHOCK [None]
